FAERS Safety Report 15640384 (Version 1)
Quarter: 2018Q4

REPORT INFORMATION
  Report Type: Report from Study
  Country: US (occurrence: US)
  Receive Date: 20181120
  Receipt Date: 20181120
  Transmission Date: 20190205
  Serious: Yes (Hospitalization, Disabling)
  Sender: FDA-Public Use
  Company Number: PHEH2018US048291

PATIENT
  Sex: Female

DRUGS (2)
  1. SPRYCEL [Suspect]
     Active Substance: DASATINIB
     Indication: PRODUCT USED FOR UNKNOWN INDICATION
     Dosage: UNK
     Route: 065
  2. TASIGNA [Suspect]
     Active Substance: NILOTINIB
     Indication: PRODUCT USED FOR UNKNOWN INDICATION
     Dosage: UNK
     Route: 065

REACTIONS (6)
  - Decreased immune responsiveness [Recovering/Resolving]
  - Fatigue [Recovering/Resolving]
  - Pleural effusion [Recovering/Resolving]
  - Cardiac disorder [Recovering/Resolving]
  - Dyspnoea [Recovering/Resolving]
  - Gait disturbance [Recovering/Resolving]
